FAERS Safety Report 6226876-3 (Version None)
Quarter: 2009Q2

REPORT INFORMATION
  Report Type: 
  Country: None (occurrence: None)
  Receive Date: 20090612
  Receipt Date: 20090604
  Transmission Date: 20091009
  Serious: Yes (Death, Life-Threatening)
  Sender: FDA-Public Use
  Company Number: JP-BAYER-200911881BYL

PATIENT
  Age: 60 Year
  Sex: Male
  Weight: 71 kg

DRUGS (14)
  1. FLUDARA [Suspect]
     Indication: FOLLICLE CENTRE LYMPHOMA, FOLLICULAR GRADE I, II, III
     Route: 042
     Dates: start: 20090119, end: 20090124
  2. MULTIPLE ANTIBIOTICS [Suspect]
     Indication: DRUG USE FOR UNKNOWN INDICATION
     Route: 065
  3. BUSULFEX [Concomitant]
     Indication: FOLLICLE CENTRE LYMPHOMA, FOLLICULAR GRADE I, II, III
     Dosage: TOTAL DAILY DOSE: 168 MG
     Route: 042
     Dates: start: 20090121, end: 20090121
  4. BUSULFEX [Concomitant]
     Dosage: TOTAL DAILY DOSE: 224 MG
     Route: 042
     Dates: start: 20090122, end: 20090122
  5. BUSULFEX [Concomitant]
     Dosage: TOTAL DAILY DOSE: 56 MG
     Route: 042
     Dates: start: 20090123, end: 20090123
  6. ALKERAN [Concomitant]
     Indication: FOLLICLE CENTRE LYMPHOMA, FOLLICULAR GRADE I, II, III
     Route: 042
     Dates: start: 20090123, end: 20090124
  7. DEPAKENE [Concomitant]
     Indication: CONVULSION PROPHYLAXIS
     Route: 048
     Dates: start: 20090120, end: 20090125
  8. SANDIMMUNE [Concomitant]
     Route: 042
     Dates: start: 20090126, end: 20090207
  9. METHOTREXATE [Concomitant]
     Route: 042
     Dates: start: 20090202, end: 20090202
  10. METHOTREXATE [Concomitant]
     Route: 042
     Dates: start: 20090128, end: 20090128
  11. METHOTREXATE [Concomitant]
     Route: 042
     Dates: start: 20090130, end: 20090130
  12. CONCENTRATED RED CELLS [Concomitant]
     Indication: PACKED RED BLOOD CELL TRANSFUSION
     Route: 042
     Dates: start: 20090123, end: 20090310
  13. PLATELETS [Concomitant]
     Indication: PLATELET TRANSFUSION
     Route: 042
     Dates: start: 20090129, end: 20090309
  14. FRESH FROZEN PLASMA [Concomitant]
     Indication: BLOOD PRODUCT TRANSFUSION
     Route: 042
     Dates: start: 20090203, end: 20090217

REACTIONS (7)
  - ADENOVIRAL HAEMORRHAGIC CYSTITIS [None]
  - CYTOMEGALOVIRUS VIRAEMIA [None]
  - DEATH [None]
  - FEBRILE NEUTROPENIA [None]
  - HEPATIC CONGESTION [None]
  - PSEUDOMEMBRANOUS COLITIS [None]
  - RENAL FAILURE ACUTE [None]
